FAERS Safety Report 20297155 (Version 2)
Quarter: 2022Q1

REPORT INFORMATION
  Report Type: Spontaneous
  Country: US (occurrence: None)
  Receive Date: 20220105
  Receipt Date: 20220119
  Transmission Date: 20220423
  Serious: No
  Sender: FDA-Public Use
  Company Number: 2021A882580

PATIENT
  Age: 24685 Day
  Sex: Female
  Weight: 89.8 kg

DRUGS (2)
  1. FASENRA [Suspect]
     Active Substance: BENRALIZUMAB
     Indication: Asthma
     Route: 058
     Dates: start: 20210519
  2. WARFARIN [Concomitant]
     Active Substance: WARFARIN
     Dosage: 27.5 WEEKLY
     Route: 065

REACTIONS (6)
  - Anaemia [Unknown]
  - Vitamin B12 increased [Unknown]
  - Haemoglobin decreased [Unknown]
  - Haematocrit decreased [Unknown]
  - Mean cell haemoglobin decreased [Unknown]
  - Mean cell volume decreased [Unknown]

NARRATIVE: CASE EVENT DATE: 20211101
